FAERS Safety Report 21240474 (Version 2)
Quarter: 2022Q4

REPORT INFORMATION
  Report Type: Report from Study
  Country: BR (occurrence: BR)
  Receive Date: 20220822
  Receipt Date: 20221005
  Transmission Date: 20230113
  Serious: Yes (Hospitalization)
  Sender: FDA-Public Use
  Company Number: BR-BIOGEN-2022BI01148875

PATIENT
  Age: 5 Year
  Sex: Female
  Weight: 13 kg

DRUGS (7)
  1. SPINRAZA [Suspect]
     Active Substance: NUSINERSEN
     Indication: Spinal muscular atrophy
     Route: 050
     Dates: start: 20180117
  2. CAPTOPRIL [Concomitant]
     Active Substance: CAPTOPRIL
     Indication: Blood pressure abnormal
     Route: 050
     Dates: start: 20170529
  3. PROPANTHELINE [Concomitant]
     Active Substance: PROPANTHELINE
     Indication: Saliva altered
     Route: 050
  4. ESOMEPRAZOLE [Concomitant]
     Active Substance: ESOMEPRAZOLE
     Indication: Gastrooesophageal reflux disease
     Route: 050
     Dates: start: 20170529
  5. AEROLIN (Salbutamol Sulfate) [Concomitant]
     Indication: Lung disorder
     Route: 050
     Dates: start: 201706
  6. SERETIDE (Fluticasone + Salmeterol) [Concomitant]
     Indication: Lung disorder
     Route: 050
     Dates: start: 2017
  7. SODIUM CHLORIDE [Concomitant]
     Active Substance: SODIUM CHLORIDE
     Indication: Lung disorder
     Route: 050
     Dates: start: 2017

REACTIONS (7)
  - Fatigue [Recovered/Resolved]
  - Bronchospasm [Recovered/Resolved]
  - Wheezing [Recovered/Resolved]
  - Breath sounds abnormal [Not Recovered/Not Resolved]
  - Oxygen saturation decreased [Not Recovered/Not Resolved]
  - Pallor [Recovered/Resolved]
  - Pyrexia [Recovered/Resolved]

NARRATIVE: CASE EVENT DATE: 20220601
